FAERS Safety Report 25390409 (Version 3)
Quarter: 2025Q3

REPORT INFORMATION
  Report Type: Report from Study
  Country: PH (occurrence: PH)
  Receive Date: 20250603
  Receipt Date: 20250815
  Transmission Date: 20251021
  Serious: Yes (Death, Hospitalization)
  Sender: OTSUKA
  Company Number: PH-MMM-Otsuka-2KE61JGB

PATIENT
  Sex: Female

DRUGS (2)
  1. TOLVAPTAN [Suspect]
     Active Substance: TOLVAPTAN
     Indication: Fluid retention
     Dosage: 0.5 DF, BID (15MG 1/2 TABLET TWICE DAILY)
     Route: 048
     Dates: start: 202411, end: 20250718
  2. TOLVAPTAN [Suspect]
     Active Substance: TOLVAPTAN
     Indication: Renal failure

REACTIONS (6)
  - Sepsis [Fatal]
  - Choking [Unknown]
  - Pneumonia aspiration [Unknown]
  - Wrong technique in product usage process [Unknown]
  - Inappropriate schedule of product administration [Unknown]
  - Product use in unapproved indication [Unknown]

NARRATIVE: CASE EVENT DATE: 20241101
